APPROVED DRUG PRODUCT: ZOLINZA
Active Ingredient: VORINOSTAT
Strength: 100MG
Dosage Form/Route: CAPSULE;ORAL
Application: N021991 | Product #001
Applicant: MERCK SHARP AND DOHME LLC A SUB OF MERCK AND CO INC
Approved: Oct 6, 2006 | RLD: Yes | RS: Yes | Type: RX

PATENTS:
Patent 8450372 | Expires: Mar 18, 2028
Patent 7456219 | Expires: Mar 11, 2027
Patent 8093295 | Expires: May 16, 2026